FAERS Safety Report 18380074 (Version 3)
Quarter: 2020Q4

REPORT INFORMATION
  Report Type: Spontaneous
  Country: BB (occurrence: BB)
  Receive Date: 20201014
  Receipt Date: 20201207
  Transmission Date: 20210114
  Serious: Yes (Death, Disabling, Other)
  Sender: FDA-Public Use
  Company Number: BB-ROCHE-2693805

PATIENT
  Age: 69 Year
  Sex: Male

DRUGS (10)
  1. MABTHERA [Suspect]
     Active Substance: RITUXIMAB
     Dosage: MAINTENANCE DOSE WAS NOT REPORTED
     Route: 065
     Dates: start: 200909, end: 201106
  2. CYCLOPHOSPHAMIDE. [Concomitant]
     Active Substance: CYCLOPHOSPHAMIDE
     Indication: DIFFUSE LARGE B-CELL LYMPHOMA
     Dates: start: 200905, end: 200907
  3. ETOPOSIDE. [Concomitant]
     Active Substance: ETOPOSIDE
     Indication: DIFFUSE LARGE B-CELL LYMPHOMA
     Dates: start: 200903, end: 200907
  4. MABTHERA [Suspect]
     Active Substance: RITUXIMAB
     Dosage: FOUR CYCLES
     Route: 065
     Dates: start: 200905, end: 200907
  5. ONCOVIN [Concomitant]
     Active Substance: VINCRISTINE SULFATE
     Indication: DIFFUSE LARGE B-CELL LYMPHOMA
     Dates: start: 200905, end: 200907
  6. PREDNISONE. [Concomitant]
     Active Substance: PREDNISONE
     Indication: DIFFUSE LARGE B-CELL LYMPHOMA
     Dates: start: 200905, end: 200907
  7. MABTHERA [Suspect]
     Active Substance: RITUXIMAB
     Indication: DIFFUSE LARGE B-CELL LYMPHOMA
     Dosage: SEVEN CYCLES
     Route: 065
     Dates: start: 200509, end: 200511
  8. MABTHERA [Suspect]
     Active Substance: RITUXIMAB
     Dosage: DOSE AND FREQUENCY WERE NOT REPORTED
     Route: 065
     Dates: start: 200609, end: 200612
  9. ZEVALIN [Concomitant]
     Active Substance: IBRITUMOMAB TIUXETAN
     Indication: DIFFUSE LARGE B-CELL LYMPHOMA
     Dates: start: 200609, end: 200612
  10. HYDROXYDAUNORUBICIN [Concomitant]
     Active Substance: DOXORUBICIN
     Indication: DIFFUSE LARGE B-CELL LYMPHOMA
     Dates: start: 200905, end: 200907

REACTIONS (6)
  - Bacterial sepsis [Unknown]
  - Weight decreased [Unknown]
  - Blindness unilateral [Unknown]
  - Eye pain [Unknown]
  - Death [Fatal]
  - Diffuse large B-cell lymphoma recurrent [Unknown]

NARRATIVE: CASE EVENT DATE: 200809
